FAERS Safety Report 7443048-5 (Version None)
Quarter: 2011Q2

REPORT INFORMATION
  Report Type: 
  Country: None (occurrence: None)
  Receive Date: 20110428
  Receipt Date: 20110425
  Transmission Date: 20111010
  Serious: No
  Sender: FDA-Public Use
  Company Number: US-PFIZER INC-2011089483

PATIENT
  Sex: Female
  Weight: 81.633 kg

DRUGS (4)
  1. VIVELLE [Concomitant]
     Indication: HYSTERECTOMY
     Dosage: 0.75 MG, 2X/WEEK PATCH
     Route: 062
  2. CHANTIX [Suspect]
     Indication: SMOKING CESSATION THERAPY
     Dosage: 0.5 MG, 1X/DAY
     Dates: start: 20110404
  3. CHANTIX [Suspect]
     Dosage: 1 MG, 2X/DAY
     Route: 048
     Dates: start: 20110401
  4. TRIAMTERENE [Concomitant]
     Indication: OEDEMA PERIPHERAL
     Dosage: 47.5 MG, DAILY
     Route: 048

REACTIONS (1)
  - PRURITUS [None]
